FAERS Safety Report 14910094 (Version 2)
Quarter: 2018Q4

REPORT INFORMATION
  Report Type: Spontaneous
  Country: US (occurrence: US)
  Receive Date: 20180517
  Receipt Date: 20181221
  Transmission Date: 20190204
  Serious: Yes (Other)
  Sender: FDA-Public Use
  Company Number: US-TAKEDA-2018TUS011089

PATIENT
  Age: 60 Year
  Sex: Female
  Weight: 54 kg

DRUGS (49)
  1. PREVACID [Suspect]
     Active Substance: LANSOPRAZOLE
     Dosage: 15 MG, BID
     Route: 065
     Dates: start: 200905, end: 201402
  2. OMEPRAZOLE MAGNESIUM. [Suspect]
     Active Substance: OMEPRAZOLE MAGNESIUM
     Indication: GASTROOESOPHAGEAL REFLUX DISEASE
     Dosage: UNK
     Route: 048
     Dates: start: 200306, end: 201707
  3. OMEPRAZOLE MAGNESIUM. [Suspect]
     Active Substance: OMEPRAZOLE MAGNESIUM
     Dosage: 20 MG, QD
     Route: 048
     Dates: start: 200306, end: 200904
  4. HYDROXYZINE PAMOATE. [Concomitant]
     Active Substance: HYDROXYZINE PAMOATE
     Dosage: 25 MG, 2X/DAY
     Dates: start: 20091016
  5. LORAZEPAM. [Concomitant]
     Active Substance: LORAZEPAM
     Dosage: 1 MG, QD
  6. LISINOPRIL. [Concomitant]
     Active Substance: LISINOPRIL
     Indication: HYPERTENSION
     Dosage: UNK
     Dates: start: 2010, end: 2016
  7. PRILOSEC [Suspect]
     Active Substance: OMEPRAZOLE MAGNESIUM
     Indication: PRODUCT USED FOR UNKNOWN INDICATION
     Dosage: UNK
     Route: 048
     Dates: start: 200306, end: 201707
  8. DICLOFENAC [Concomitant]
     Active Substance: DICLOFENAC
     Indication: PAIN IN EXTREMITY
     Dosage: UNK
  9. DICLOFENAC [Concomitant]
     Active Substance: DICLOFENAC
     Indication: FLUID RETENTION
     Dosage: UNK
     Dates: start: 2012
  10. ZANTAC [Concomitant]
     Active Substance: RANITIDINE HYDROCHLORIDE
     Dosage: UNK
     Dates: start: 2010
  11. ASPIRIN. [Concomitant]
     Active Substance: ASPIRIN
     Dosage: 81 MG, 1X/DAY
  12. PREVACID [Suspect]
     Active Substance: LANSOPRAZOLE
     Indication: GASTROOESOPHAGEAL REFLUX DISEASE
     Dosage: UNK
     Route: 065
     Dates: start: 200306, end: 201707
  13. OMEPRAZOLE MAGNESIUM. [Suspect]
     Active Substance: OMEPRAZOLE MAGNESIUM
     Dosage: 20 MG, BID
     Route: 048
     Dates: start: 200306
  14. DICLOFENAC [Concomitant]
     Active Substance: DICLOFENAC
     Indication: PAIN
     Dosage: 500 MG, 2X/DAY
     Dates: start: 20140711, end: 2015
  15. DICLOFENAC [Concomitant]
     Active Substance: DICLOFENAC
     Indication: INFLAMMATION
     Dosage: GENERIC
     Dates: start: 2010, end: 2016
  16. DICLOFENAC [Concomitant]
     Active Substance: DICLOFENAC
     Dosage: UNK
     Dates: start: 2015
  17. DICLOFENAC [Concomitant]
     Active Substance: DICLOFENAC
     Dosage: 75 MG, 2X/DAY
  18. BENADRYL [Concomitant]
     Active Substance: DIPHENHYDRAMINE HYDROCHLORIDE
     Indication: INFLAMMATION
     Dosage: UNK
     Dates: start: 2015
  19. HYDROCOD/ACETA [Concomitant]
     Dosage: 5-500 MG EVERY 8 HOURS AS NEEDED
     Dates: start: 20120517
  20. PAROXETINE. [Concomitant]
     Active Substance: PAROXETINE
     Dosage: 20 MG, QD
     Dates: start: 20091016
  21. CLONAZEPAM. [Concomitant]
     Active Substance: CLONAZEPAM
     Dosage: 1 MG, BID
  22. BUSPIRONE [Concomitant]
     Active Substance: BUSPIRONE HYDROCHLORIDE
     Dosage: 7.5 MG, TID
  23. HYDROCHLOROTHIAZIDE. [Concomitant]
     Active Substance: HYDROCHLOROTHIAZIDE
     Indication: HYPERTENSION
     Dosage: UNK
     Dates: start: 2014
  24. HYDROCHLOROTHIAZIDE. [Concomitant]
     Active Substance: HYDROCHLOROTHIAZIDE
     Indication: FLUID RETENTION
  25. PROTONIX [Suspect]
     Active Substance: PANTOPRAZOLE SODIUM
     Indication: PRODUCT USED FOR UNKNOWN INDICATION
     Dosage: UNK
     Route: 065
     Dates: start: 200306, end: 201707
  26. DICLOFENAC [Concomitant]
     Active Substance: DICLOFENAC
     Dosage: UNK
     Dates: start: 2017
  27. DICLOFENAC [Concomitant]
     Active Substance: DICLOFENAC
     Dosage: 1 MG, 2X/DAY
  28. PEPCID AC [Concomitant]
     Active Substance: FAMOTIDINE
     Dosage: UNK
  29. TRAMADOL. [Concomitant]
     Active Substance: TRAMADOL
     Indication: PAIN
     Dosage: UNK
     Dates: start: 2014, end: 2017
  30. NEXIUM 24HR [Suspect]
     Active Substance: ESOMEPRAZOLE MAGNESIUM
     Dosage: 20 MG, QD
     Route: 048
     Dates: start: 201403, end: 201708
  31. DICLOFENAC [Concomitant]
     Active Substance: DICLOFENAC
     Indication: HYPERTENSION
     Dosage: 250 MG, 1X/DAY
     Dates: start: 20121126
  32. DICLOFENAC [Concomitant]
     Active Substance: DICLOFENAC
     Dosage: 20 MG, 1X/DAY
     Dates: start: 20091016
  33. TAGAMET [Concomitant]
     Active Substance: CIMETIDINE
     Dosage: UNK
     Dates: start: 2010
  34. DICLOFENAC SODIUM. [Concomitant]
     Active Substance: DICLOFENAC SODIUM
     Dosage: 75 MG, BID
  35. DEXILANT [Suspect]
     Active Substance: DEXLANSOPRAZOLE
     Indication: PRODUCT USED FOR UNKNOWN INDICATION
     Dosage: UNK
     Route: 065
     Dates: start: 200306, end: 201707
  36. DICLOFENAC [Concomitant]
     Active Substance: DICLOFENAC
     Indication: INFECTION
     Dosage: UNK
     Dates: start: 2014, end: 2017
  37. DICLOFENAC [Concomitant]
     Active Substance: DICLOFENAC
     Dosage: APPLY TO AFFECTED AREA
     Dates: start: 20100506
  38. MOTRIN [Concomitant]
     Active Substance: IBUPROFEN
     Indication: INFLAMMATION
     Dosage: UNK
     Dates: start: 2015
  39. PENICILLIN                         /00000901/ [Concomitant]
     Active Substance: PENICILLIN G
     Indication: INFECTION
     Dosage: UNK
     Dates: start: 2012
  40. PREVACID 24 HR [Suspect]
     Active Substance: LANSOPRAZOLE
     Indication: GASTROOESOPHAGEAL REFLUX DISEASE
     Dosage: UNK
     Route: 048
     Dates: start: 200306, end: 201707
  41. PREVACID 24 HR [Suspect]
     Active Substance: LANSOPRAZOLE
     Dosage: 15 MG, BID
     Route: 065
     Dates: start: 200905, end: 201402
  42. DICLOFENAC [Concomitant]
     Active Substance: DICLOFENAC
     Dosage: 1 MG, 1X/DAY
  43. NEXIUM [Suspect]
     Active Substance: ESOMEPRAZOLE MAGNESIUM
     Indication: PRODUCT USED FOR UNKNOWN INDICATION
     Dosage: UNK
     Route: 048
     Dates: start: 200306, end: 201707
  44. NEXIUM 24HR [Suspect]
     Active Substance: ESOMEPRAZOLE MAGNESIUM
     Indication: GASTROOESOPHAGEAL REFLUX DISEASE
     Dosage: UNK
     Route: 048
     Dates: start: 200306, end: 201707
  45. DICLOFENAC [Concomitant]
     Active Substance: DICLOFENAC
     Dosage: 7.5 MG, 3X/DAY
  46. LASIX [Concomitant]
     Active Substance: FUROSEMIDE
     Dosage: 20 MG, 1X/DAY
     Dates: start: 20140915
  47. OXYCODONE/ACETAAMINOPHEN [Concomitant]
     Dosage: 7.5-325MG EVERY 6 HOURS AS NEEDED
     Dates: start: 20150515
  48. NAPROXEN. [Concomitant]
     Active Substance: NAPROXEN
     Indication: PAIN
     Dosage: 500 MG, BID
     Dates: start: 20140711, end: 2015
  49. AZITHROMYCIN ANHYDROUS. [Concomitant]
     Active Substance: AZITHROMYCIN ANHYDROUS
     Indication: INFECTION
     Dosage: 250 MG, QD
     Dates: start: 20121126

REACTIONS (3)
  - Renal disorder [Unknown]
  - Renal failure [Unknown]
  - Chronic kidney disease [Not Recovered/Not Resolved]

NARRATIVE: CASE EVENT DATE: 201705
